FAERS Safety Report 16729982 (Version 1)
Quarter: 2019Q3

REPORT INFORMATION
  Report Type: Spontaneous
  Country: US (occurrence: US)
  Receive Date: 20190822
  Receipt Date: 20190822
  Transmission Date: 20191005
  Serious: Yes (Other)
  Sender: FDA-Public Use
  Company Number: US-REGENERON PHARMACEUTICALS, INC.-2019-48086

PATIENT

DRUGS (1)
  1. EYLEA [Suspect]
     Active Substance: AFLIBERCEPT
     Indication: DIABETIC RETINAL OEDEMA

REACTIONS (11)
  - Maculopathy [Unknown]
  - Choroidal neovascularisation [Unknown]
  - Vitreous haemorrhage [Unknown]
  - Retinal vascular disorder [Unknown]
  - Metamorphopsia [Unknown]
  - Vision blurred [Unknown]
  - Angiopathy [Unknown]
  - Macular oedema [Unknown]
  - Detachment of retinal pigment epithelium [Unknown]
  - Halo vision [Unknown]
  - Visual acuity reduced [Unknown]
